FAERS Safety Report 10422991 (Version 2)
Quarter: 2015Q3

REPORT INFORMATION
  Report Type: Spontaneous
  Country: US (occurrence: None)
  Receive Date: 20140709
  Receipt Date: 20150709
  Transmission Date: 20151125
  Serious: Yes (Other)
  Sender: FDA-Public Use
  Company Number: PHEH2014US002008

PATIENT
  Age: 28 Year
  Sex: Female

DRUGS (1)
  1. GLEEVEC [Suspect]
     Active Substance: IMATINIB MESYLATE
     Indication: PRODUCT USED FOR UNKNOWN INDICATION
     Dosage: 600 MG, ONCE, DAILY, ORAL
     Route: 048
     Dates: start: 200509, end: 20140119

REACTIONS (7)
  - Splenomegaly [None]
  - Dizziness [None]
  - Haemoglobin decreased [None]
  - Drug intolerance [None]
  - Drug ineffective [None]
  - Asthenia [None]
  - White blood cell count increased [None]
